FAERS Safety Report 24330179 (Version 1)
Quarter: 2024Q3

REPORT INFORMATION
  Report Type: Spontaneous
  Country: CA (occurrence: CA)
  Receive Date: 20240917
  Receipt Date: 20240917
  Transmission Date: 20241016
  Serious: Yes (Other)
  Sender: ORGANON
  Company Number: CA-ORGANON-O2409CAN001046

PATIENT
  Age: 18 Year
  Sex: Female

DRUGS (2)
  1. REMERON [Suspect]
     Active Substance: MIRTAZAPINE
     Indication: Depression
     Dosage: UNK, QD (1 EVERY 1 DAYS)
     Route: 065
  2. REMERON [Suspect]
     Active Substance: MIRTAZAPINE
     Dosage: UNK, QD (1 EVERY 1 DAYS)
     Route: 065

REACTIONS (1)
  - Intracranial pressure increased [Recovered/Resolved]
